FAERS Safety Report 8840465 (Version 1)
Quarter: 2012Q4

REPORT INFORMATION
  Report Type: 
  Country: ES (occurrence: ES)
  Receive Date: 20121015
  Receipt Date: 20121015
  Transmission Date: 20130627
  Serious: Yes (Hospitalization, Other)
  Sender: FDA-Public Use
  Company Number: ES-ELI_LILLY_AND_COMPANY-ES201210002209

PATIENT
  Age: 16 Year
  Sex: Female
  Weight: 40 kg

DRUGS (2)
  1. CYMBALTA [Suspect]
     Dosage: 30 mg, qd
  2. INDERALICI [Concomitant]
     Dosage: UNK, tid

REACTIONS (8)
  - Condition aggravated [Unknown]
  - Suicidal ideation [Unknown]
  - Weight decreased [Not Recovered/Not Resolved]
  - Chest pain [Recovered/Resolved]
  - Restlessness [Not Recovered/Not Resolved]
  - Insomnia [Not Recovered/Not Resolved]
  - Depressed mood [Not Recovered/Not Resolved]
  - Off label use [Unknown]
